FAERS Safety Report 18740791 (Version 1)
Quarter: 2021Q1

REPORT INFORMATION
  Report Type: Spontaneous
  Country: TN (occurrence: TN)
  Receive Date: 20210114
  Receipt Date: 20210114
  Transmission Date: 20210419
  Serious: Yes (Death, Hospitalization)
  Sender: FDA-Public Use
  Company Number: TN-MACLEODS PHARMACEUTICALS US LTD-MAC2021029763

PATIENT

DRUGS (6)
  1. CAPTOPRIL. [Concomitant]
     Active Substance: CAPTOPRIL
     Indication: MYOCARDIAL ISCHAEMIA
     Dosage: UNK
     Route: 065
  2. MOLSIDOMINE [Concomitant]
     Active Substance: MOLSIDOMINE
     Indication: MYOCARDIAL ISCHAEMIA
     Dosage: UNK
     Route: 065
  3. ASPIRIN. [Concomitant]
     Active Substance: ASPIRIN
     Indication: MYOCARDIAL ISCHAEMIA
     Dosage: UNK
     Route: 065
  4. CLOPIDOGREL [Suspect]
     Active Substance: CLOPIDOGREL BISULFATE
     Indication: CORONARY ARTERIAL STENT INSERTION
     Dosage: 75 MILLIGRAM, QD
     Route: 065
  5. HUMAN INSULIN [Concomitant]
     Active Substance: INSULIN HUMAN
     Indication: DIABETES MELLITUS
     Dosage: UNK
     Route: 065
  6. SIMVASTATIN. [Concomitant]
     Active Substance: SIMVASTATIN
     Indication: MYOCARDIAL ISCHAEMIA
     Dosage: UNK
     Route: 065

REACTIONS (5)
  - Haemoptysis [Unknown]
  - Hepatotoxicity [Fatal]
  - Encephalopathy [Unknown]
  - Thrombocytopenia [Unknown]
  - Drug-induced liver injury [Fatal]
